FAERS Safety Report 14902367 (Version 2)
Quarter: 2019Q2

REPORT INFORMATION
  Report Type: Spontaneous
  Country: GB (occurrence: GB)
  Receive Date: 20180516
  Receipt Date: 20190607
  Transmission Date: 20190711
  Serious: Yes (Other)
  Sender: FDA-Public Use
  Company Number: GB-EMD SERONO-9026416

PATIENT
  Age: 65 Year
  Sex: Male

DRUGS (5)
  1. REBIF [Suspect]
     Active Substance: INTERFERON BETA-1A
     Route: 058
  2. REBIF [Suspect]
     Active Substance: INTERFERON BETA-1A
     Route: 058
  3. DOSULEPIN HYDROCHLORIDE [Concomitant]
     Active Substance: DOTHIEPIN HYDROCHLORIDE
     Indication: PRODUCT USED FOR UNKNOWN INDICATION
  4. BACLOFEN. [Concomitant]
     Active Substance: BACLOFEN
     Indication: PRODUCT USED FOR UNKNOWN INDICATION
  5. REBIF [Suspect]
     Active Substance: INTERFERON BETA-1A
     Indication: MULTIPLE SCLEROSIS
     Dosage: CARTRIDGES 22MCG (6MIU)
     Route: 058
     Dates: start: 20080116

REACTIONS (10)
  - Prostatic specific antigen increased [Unknown]
  - Blood test abnormal [Unknown]
  - Device issue [Unknown]
  - Neoplasm malignant [Unknown]
  - Biopsy testes abnormal [Unknown]
  - Visual impairment [Unknown]
  - Prostatic dysplasia [Unknown]
  - Ill-defined disorder [Unknown]
  - Cognitive disorder [Unknown]
  - Product dose omission [Unknown]

NARRATIVE: CASE EVENT DATE: 20190521
